FAERS Safety Report 6645142-5 (Version None)
Quarter: 2010Q1

REPORT INFORMATION
  Report Type: 
  Country: None (occurrence: None)
  Receive Date: 20100322
  Receipt Date: 20100311
  Transmission Date: 20100710
  Serious: Yes (Death)
  Sender: FDA-Public Use
  Company Number: JP-BAXTER-2009BH018255

PATIENT
  Age: 89 Year
  Sex: Female
  Weight: 60 kg

DRUGS (5)
  1. FEIBA VH IMMUNO [Suspect]
     Indication: ACQUIRED HAEMOPHILIA
     Route: 042
  2. CEFOPERAZONE SODIUM/SULBACTAM SODIUM [Concomitant]
     Indication: INFECTION
     Route: 042
     Dates: start: 20091109
  3. PREDONINE [Concomitant]
     Indication: ACQUIRED HAEMOPHILIA
     Route: 042
     Dates: start: 20091007
  4. FAMOTIDINE [Concomitant]
     Indication: PROPHYLAXIS AGAINST GASTROINTESTINAL ULCER
     Route: 042
     Dates: start: 20091104
  5. ADONA [Concomitant]
     Indication: HAEMORRHAGE PROPHYLAXIS
     Route: 042
     Dates: start: 20090101

REACTIONS (1)
  - CEREBRAL HAEMORRHAGE [None]
